FAERS Safety Report 15548863 (Version 1)
Quarter: 2018Q4

REPORT INFORMATION
  Report Type: Report from Study
  Country: US (occurrence: US)
  Receive Date: 20181025
  Receipt Date: 20181025
  Transmission Date: 20190205
  Serious: Yes (Disabling)
  Sender: FDA-Public Use
  Company Number: US-ROCHE-2202063

PATIENT
  Age: 37 Year
  Sex: Female

DRUGS (4)
  1. OCREVUS [Suspect]
     Active Substance: OCRELIZUMAB
     Indication: MULTIPLE SCLEROSIS
     Dosage: 1ST HALF DOSE OF OCREVUS
     Route: 042
     Dates: start: 20180925, end: 20180925
  2. OCREVUS [Suspect]
     Active Substance: OCRELIZUMAB
     Dosage: 2ND HALF DOSE OF OCREVUS ;ONGOING: NO
     Route: 042
     Dates: start: 20181009, end: 20181009
  3. BENADRYL [Suspect]
     Active Substance: DIPHENHYDRAMINE HYDROCHLORIDE
     Indication: PREMEDICATION
     Dosage: ONGOING: NO
     Route: 065
     Dates: start: 20180925, end: 20180925
  4. BENADRYL [Suspect]
     Active Substance: DIPHENHYDRAMINE HYDROCHLORIDE
     Dosage: DOSE WAS CUT IN HALF ;ONGOING: UNKNOWN
     Route: 065
     Dates: start: 20181009

REACTIONS (7)
  - Blood pressure decreased [Recovered/Resolved]
  - Tremor [Recovered/Resolved]
  - Heart rate increased [Recovered/Resolved]
  - Nausea [Recovered/Resolved]
  - Tunnel vision [Recovered/Resolved]
  - Diplopia [Recovered/Resolved]
  - Vertigo [Recovered/Resolved]

NARRATIVE: CASE EVENT DATE: 20180925
